FAERS Safety Report 20028053 (Version 1)
Quarter: 2021Q4

REPORT INFORMATION
  Report Type: Spontaneous
  Country: US (occurrence: US)
  Receive Date: 20211103
  Receipt Date: 20211103
  Transmission Date: 20220303
  Serious: Yes (Other)
  Sender: FDA-Public Use
  Company Number: US-SA-SAC20211029001315

PATIENT
  Age: 41 Year
  Sex: Male

DRUGS (1)
  1. ZANTAC [Suspect]
     Active Substance: RANITIDINE HYDROCHLORIDE
     Dosage: 150 MG, QD
     Dates: start: 201208, end: 201908

REACTIONS (3)
  - Pancreatic carcinoma stage IV [Unknown]
  - Pancreatic carcinoma metastatic [Unknown]
  - Pancreatic neuroendocrine tumour metastatic [Unknown]

NARRATIVE: CASE EVENT DATE: 20200305
